FAERS Safety Report 8981491 (Version 2)
Quarter: 2012Q4

REPORT INFORMATION
  Report Type: 
  Country: PL (occurrence: PL)
  Receive Date: 20121221
  Receipt Date: 20121229
  Transmission Date: 20130627
  Serious: Yes (Hospitalization)
  Sender: FDA-Public Use
  Company Number: PL-MERCK-1212POL007384

PATIENT
  Age: 27 Year
  Sex: Female

DRUGS (2)
  1. PEGINTRON [Suspect]
     Indication: HEPATITIS C
     Dosage: 80 microgram/0.5 ml,qw
     Dates: start: 20111118, end: 20111208
  2. REBETOL [Suspect]
     Indication: HEPATITIS C
     Dosage: 400 mg, bid
     Route: 048
     Dates: start: 20111118, end: 20111208

REACTIONS (3)
  - Neutropenia [Recovering/Resolving]
  - Oral herpes [Recovered/Resolved]
  - Lymphadenopathy [Recovered/Resolved]
